FAERS Safety Report 21849464 (Version 2)
Quarter: 2023Q1

REPORT INFORMATION
  Report Type: Spontaneous
  Country: CH (occurrence: CH)
  Receive Date: 20230111
  Receipt Date: 20230220
  Transmission Date: 20230417
  Serious: Yes (Other)
  Sender: FDA-Public Use
  Company Number: CH-BAYER-2023A001244

PATIENT
  Age: 20 Year
  Sex: Female

DRUGS (1)
  1. KYLEENA [Suspect]
     Active Substance: LEVONORGESTREL
     Indication: Contraception
     Dosage: 17.5?G/DAY
     Route: 015
     Dates: start: 20200204

REACTIONS (2)
  - Neurodermatitis [Not Recovered/Not Resolved]
  - Pruritus [None]

NARRATIVE: CASE EVENT DATE: 20200101
